FAERS Safety Report 13904865 (Version 1)
Quarter: 2017Q3

REPORT INFORMATION
  Report Type: Report from Study
  Country: UA (occurrence: UA)
  Receive Date: 20170825
  Receipt Date: 20170825
  Transmission Date: 20171127
  Serious: Yes (Hospitalization)
  Sender: FDA-Public Use
  Company Number: UA-ROCHE-GNE262889

PATIENT
  Age: 15 Year
  Sex: Female

DRUGS (4)
  1. SOMATROPIN. [Suspect]
     Active Substance: SOMATROPIN
     Indication: TURNER^S SYNDROME
     Dosage: 2.1 MG, QD
     Route: 058
     Dates: start: 20070912, end: 20080204
  2. FURAMAG (FURAZIDIN) [Concomitant]
  3. NO-SPA [Concomitant]
     Active Substance: DROTAVERINE HYDROCHLORIDE
     Indication: PAIN
     Dosage: 120 MG, QD
     Route: 048
     Dates: start: 20080206, end: 20080214
  4. NO-SPA [Concomitant]
     Active Substance: DROTAVERINE HYDROCHLORIDE
     Indication: MUSCLE SPASMS

REACTIONS (1)
  - Pyelonephritis acute [Recovered/Resolved with Sequelae]

NARRATIVE: CASE EVENT DATE: 20080205
